FAERS Safety Report 11029533 (Version 1)
Quarter: 2015Q2

REPORT INFORMATION
  Report Type: Spontaneous
  Country: US (occurrence: None)
  Receive Date: 20150414
  Receipt Date: 20150414
  Transmission Date: 20150821
  Serious: Yes (Life-Threatening, Other)
  Sender: FDA-Public Use
  Company Number: None

PATIENT

DRUGS (8)
  1. BENADRYL [Concomitant]
     Active Substance: DIPHENHYDRAMINE HYDROCHLORIDE
  2. ADVIL [Concomitant]
     Active Substance: IBUPROFEN
  3. PERCOCET [Suspect]
     Active Substance: ACETAMINOPHEN\OXYCODONE HYDROCHLORIDE
     Indication: BREAST PAIN
     Dosage: 5-325 MG, 10, 1 TAB BY MOUTH DAILY TWICE, BY MOUTH
     Route: 048
     Dates: start: 20150312, end: 20150312
  4. PERCOCET [Suspect]
     Active Substance: ACETAMINOPHEN\OXYCODONE HYDROCHLORIDE
     Indication: MUSCULOSKELETAL CHEST PAIN
     Dosage: 5-325 MG, 10, 1 TAB BY MOUTH DAILY TWICE, BY MOUTH
     Route: 048
     Dates: start: 20150312, end: 20150312
  5. ADVIL [Concomitant]
     Active Substance: IBUPROFEN
  6. PEPCID AC [Concomitant]
     Active Substance: FAMOTIDINE
  7. BENADRYL [Concomitant]
     Active Substance: DIPHENHYDRAMINE HYDROCHLORIDE
  8. VITAMIN WITH IRON [Concomitant]

REACTIONS (6)
  - Product substitution issue [None]
  - Heart rate increased [None]
  - Nausea [None]
  - Malaise [None]
  - Documented hypersensitivity to administered product [None]
  - Blood pressure increased [None]

NARRATIVE: CASE EVENT DATE: 20150312
